FAERS Safety Report 15897852 (Version 1)
Quarter: 2019Q1

REPORT INFORMATION
  Report Type: Spontaneous
  Country: US (occurrence: US)
  Receive Date: 20190201
  Receipt Date: 20190201
  Transmission Date: 20190417
  Serious: Yes (Death, Congenital Anomaly, Other)
  Sender: FDA-Public Use
  Company Number: US-CIPLA LTD.-2019US00556

PATIENT

DRUGS (3)
  1. GEMFIBROZIL. [Suspect]
     Active Substance: GEMFIBROZIL
     Dosage: UNK
     Route: 064
  2. INSULIN [Suspect]
     Active Substance: INSULIN NOS
     Dosage: UNK
     Route: 064
  3. NIACIN. [Suspect]
     Active Substance: NIACIN
     Dosage: UNK
     Route: 064

REACTIONS (4)
  - Heart disease congenital [Fatal]
  - Foetal exposure during pregnancy [Unknown]
  - Ascites [Unknown]
  - Interruption of aortic arch [Unknown]
